FAERS Safety Report 7036922-5 (Version None)
Quarter: 2010Q4

REPORT INFORMATION
  Report Type: 
  Country: None (occurrence: None)
  Receive Date: 20101011
  Receipt Date: 20100930
  Transmission Date: 20110411
  Serious: Yes (Hospitalization)
  Sender: FDA-Public Use
  Company Number: KR-ASTRAZENECA-2010SE46126

PATIENT
  Age: 66 Year
  Sex: Female

DRUGS (12)
  1. CRESTOR [Suspect]
     Indication: HYPERLIPIDAEMIA
     Route: 048
     Dates: start: 20040922
  2. ALMARL [Concomitant]
     Indication: HYPERTENSION
     Dates: start: 20031015
  3. TEVETEN [Concomitant]
     Indication: HYPERTENSION
     Dates: start: 20031119
  4. TOREM [Concomitant]
     Indication: HYPERTENSION
     Dates: start: 20031119
  5. TOREM [Concomitant]
     Indication: CUSHING'S SYNDROME
     Dates: start: 20031119
  6. NISOLONE [Concomitant]
     Indication: ARTHRITIS
     Dates: start: 20040816
  7. NISOLONE [Concomitant]
     Indication: OSTEONECROSIS
     Dates: start: 20040816
  8. ACTONEL [Concomitant]
     Indication: CUSHING'S SYNDROME
     Dates: start: 20040816
  9. PLUSCAL [Concomitant]
     Indication: ARTHRITIS
     Dates: start: 20040816
  10. MUCOSTA [Concomitant]
     Indication: GASTRITIS
     Dates: start: 20041016
  11. MOTILIUM-M [Concomitant]
     Indication: GASTRITIS
     Dates: start: 20041115
  12. MACPERAN [Concomitant]
     Indication: GASTRITIS
     Dates: start: 20041115

REACTIONS (1)
  - LUMBAR SPINAL STENOSIS [None]
